FAERS Safety Report 24735802 (Version 2)
Quarter: 2025Q1

REPORT INFORMATION
  Report Type: Report from Study
  Country: BR (occurrence: BR)
  Receive Date: 20241216
  Receipt Date: 20250203
  Transmission Date: 20250408
  Serious: Yes (Hospitalization, Other)
  Sender: NOVO NORDISK
  Company Number: BR-NOVOPROD-1331677

PATIENT
  Age: 47 Year
  Sex: Female
  Weight: 82 kg

DRUGS (2)
  1. RYBELSUS [Suspect]
     Active Substance: SEMAGLUTIDE
     Indication: Glucose tolerance impaired
     Dosage: 14 MG, QD
     Dates: start: 2024, end: 20241108
  2. RYBELSUS [Suspect]
     Active Substance: SEMAGLUTIDE
     Indication: Weight control

REACTIONS (8)
  - Urinary tract infection [Not Recovered/Not Resolved]
  - Dehydration [Unknown]
  - Asthenia [Not Recovered/Not Resolved]
  - Nephritis [Not Recovered/Not Resolved]
  - Nausea [Not Recovered/Not Resolved]
  - Vomiting [Recovered/Resolved]
  - Weight decreased [Not Recovered/Not Resolved]
  - Product use in unapproved indication [Recovered/Resolved]

NARRATIVE: CASE EVENT DATE: 20240101
